FAERS Safety Report 21699637 (Version 2)
Quarter: 2022Q4

REPORT INFORMATION
  Report Type: Spontaneous
  Country: CN (occurrence: CN)
  Receive Date: 20221208
  Receipt Date: 20221219
  Transmission Date: 20230113
  Serious: Yes (Other)
  Sender: FDA-Public Use
  Company Number: CN-JNJFOC-20221163236

PATIENT
  Age: 44 Year
  Sex: Male
  Weight: 67.5 kg

DRUGS (1)
  1. SPORANOX [Suspect]
     Active Substance: ITRACONAZOLE
     Indication: Dermatophytosis of nail
     Dosage: 2 CAPSULES/TIME, 2 TIMES/DAY
     Route: 048
     Dates: start: 20221114, end: 20221117

REACTIONS (5)
  - Dermatitis exfoliative [Recovering/Resolving]
  - Skin bacterial infection [Unknown]
  - Heart rate increased [Unknown]
  - Cardiac disorder [Unknown]
  - Prescription drug used without a prescription [Unknown]

NARRATIVE: CASE EVENT DATE: 20221101
